FAERS Safety Report 10625076 (Version 2)
Quarter: 2014Q4

REPORT INFORMATION
  Report Type: Spontaneous
  Country: IT (occurrence: None)
  Receive Date: 20141117
  Receipt Date: 20141208
  Transmission Date: 20150529
  Serious: Yes (Other)
  Sender: FDA-Public Use
  Company Number: LIT-115-14-IT

PATIENT
  Age: 49 Year
  Sex: Male

DRUGS (1)
  1. HUMAN NORMAL IMMUNOGLOBULIN (IV) (TRADENAME UNKNOWN) [Suspect]
     Active Substance: HUMAN IMMUNOGLOBULIN G
     Indication: IMMUNODEFICIENCY COMMON VARIABLE
     Dosage: IV (NOT OTHERWISE SPECIFIED)
     Route: 042

REACTIONS (9)
  - Coronary artery stenosis [None]
  - Myocardial ischaemia [None]
  - Anaemia [None]
  - Atrioventricular block complete [None]
  - Blood lactate dehydrogenase increased [None]
  - Hypertensive cardiomyopathy [None]
  - Hyperkalaemia [None]
  - Blood creatinine increased [None]
  - Haemolysis [None]
